FAERS Safety Report 8922474 (Version 6)
Quarter: 2013Q2

REPORT INFORMATION
  Report Type: Report from Study
  Country: JP (occurrence: JP)
  Receive Date: 20121123
  Receipt Date: 20130501
  Transmission Date: 20140414
  Serious: Yes (Other)
  Sender: FDA-Public Use
  Company Number: JP-PFIZER INC-2012292309

PATIENT
  Age: 18 Year
  Sex: Male
  Weight: 46.5 kg

DRUGS (7)
  1. FOSPHENYTOIN SODIUM [Suspect]
     Indication: STATUS EPILEPTICUS
     Dosage: 22.5 MG/KG AT 50 MG/MIN IN 0.9% PHYSIOLOGICAL SALINE
     Dates: start: 20121026
  2. KEPPRA [Concomitant]
     Dosage: 1000 MG, UNK
     Route: 045
     Dates: start: 20121026
  3. TEGRETOL [Concomitant]
     Dosage: 100 MG, UNK
     Route: 045
     Dates: start: 20121026
  4. FULCALIQ [Concomitant]
     Indication: INTRAVENTRICULAR HAEMORRHAGE
     Dosage: 1103 ML, UNK
     Dates: start: 20120906
  5. MINERALIN [Concomitant]
     Indication: INTRAVENTRICULAR HAEMORRHAGE
     Dosage: UNK
     Dates: start: 20120906
  6. GASTER [Concomitant]
     Indication: GASTROOESOPHAGEAL REFLUX DISEASE
     Dosage: 20 MG, UNK
     Dates: start: 20120906
  7. DDAVP [Concomitant]
     Indication: DIABETES INSIPIDUS
     Dosage: 0.012 UG, UNK
     Dates: start: 201206

REACTIONS (1)
  - False positive investigation result [Recovered/Resolved]
